FAERS Safety Report 8218398-5 (Version None)
Quarter: 2012Q1

REPORT INFORMATION
  Report Type: 
  Country: None (occurrence: None)
  Receive Date: 20120319
  Receipt Date: 20120308
  Transmission Date: 20120608
  Serious: Yes (Other)
  Sender: FDA-Public Use
  Company Number: GB-GLAXOSMITHKLINE-B0787225A

PATIENT
  Age: 60 Year
  Sex: Male

DRUGS (6)
  1. CLOPIDOGREL [Concomitant]
  2. SIMVASTATIN [Concomitant]
  3. POTIGA [Suspect]
     Indication: CONVULSION
     Dosage: 50MG THREE TIMES PER DAY
     Route: 065
     Dates: start: 20111001, end: 20120301
  4. LANSOPRAZOLE [Concomitant]
  5. LAMOTRIGINE [Concomitant]
  6. CILOSTAZOL [Suspect]
     Indication: PRODUCT USED FOR UNKNOWN INDICATION
     Route: 065
     Dates: start: 20111001, end: 20120101

REACTIONS (3)
  - CONVULSION [None]
  - MALAISE [None]
  - VOMITING [None]
